FAERS Safety Report 6313598-3 (Version None)
Quarter: 2009Q3

REPORT INFORMATION
  Report Type: 
  Country: None (occurrence: None)
  Receive Date: 20090818
  Receipt Date: 20090814
  Transmission Date: 20100115
  Serious: Yes (Hospitalization)
  Sender: FDA-Public Use
  Company Number: US-BRISTOL-MYERS SQUIBB COMPANY-14741995

PATIENT
  Age: 63 Year
  Sex: Male
  Weight: 73 kg

DRUGS (2)
  1. ERBITUX [Suspect]
     Indication: HEAD AND NECK CANCER
     Dosage: RECENT INF-19NOV08
     Dates: start: 20081029
  2. CISPLATIN [Suspect]
     Indication: HEAD AND NECK CANCER
     Dates: start: 20081105

REACTIONS (1)
  - MYOCARDIAL INFARCTION [None]
